FAERS Safety Report 9170094 (Version 1)
Quarter: 2013Q1

REPORT INFORMATION
  Report Type: Spontaneous
  Country: US (occurrence: None)
  Receive Date: 20130314
  Receipt Date: 20130314
  Transmission Date: 20140127
  Serious: Yes (Other)
  Sender: FDA-Public Use
  Company Number: None

PATIENT
  Age: 51 Year
  Sex: Female
  Weight: 23.13 kg

DRUGS (1)
  1. ZPACK [Suspect]
     Indication: BRONCHITIS
     Dosage: 2 TO START AND THEN 1 EACH DAY 1/DAY FOR 5 DAYS PO
     Route: 048
     Dates: start: 20130222, end: 20130226

REACTIONS (3)
  - Heart rate increased [None]
  - Arrhythmia [None]
  - Palpitations [None]
